FAERS Safety Report 6907668-6 (Version None)
Quarter: 2010Q3

REPORT INFORMATION
  Report Type: 
  Country: None (occurrence: None)
  Receive Date: 20100805
  Receipt Date: 20100728
  Transmission Date: 20110219
  Serious: Yes (Death)
  Sender: FDA-Public Use
  Company Number: JP-NOVOPROD-312182

PATIENT
  Age: 75 Year
  Sex: Male
  Weight: 78 kg

DRUGS (8)
  1. NOVOSEVEN [Suspect]
     Indication: RETROPERITONEAL HAEMORRHAGE
     Dosage: EVERY 3 HOURS
     Route: 042
     Dates: start: 20100522, end: 20100527
  2. NOVOSEVEN [Suspect]
     Dosage: EVERY 6 HOURS
     Dates: start: 20100527, end: 20100529
  3. NOVOSEVEN [Suspect]
     Dosage: EVERY 8 HOURS
     Dates: start: 20100529, end: 20100603
  4. NOVOSEVEN [Suspect]
     Dosage: 6.4 MG, SINGLE
     Route: 042
     Dates: start: 20100603, end: 20100603
  5. NOVOSEVEN [Suspect]
     Dosage: EVERY 3 HOURS
     Dates: start: 20100603
  6. METHYLPREDNISOLONE [Concomitant]
     Indication: PRODUCT USED FOR UNKNOWN INDICATION
     Dosage: 500 MG, QD
     Route: 042
     Dates: start: 20100525, end: 20100527
  7. HUMAN RED BLOOD CELLS [Concomitant]
     Indication: PRODUCT USED FOR UNKNOWN INDICATION
     Dosage: 4 U, QD
     Route: 042
     Dates: start: 20100522
  8. TAKEPRON [Concomitant]
     Indication: PRODUCT USED FOR UNKNOWN INDICATION
     Dosage: 15 MG, QD
     Route: 048

REACTIONS (1)
  - SHOCK HAEMORRHAGIC [None]
